FAERS Safety Report 11132159 (Version 1)
Quarter: 2015Q2

REPORT INFORMATION
  Report Type: Spontaneous
  Country: US (occurrence: US)
  Receive Date: 20150522
  Receipt Date: 20150522
  Transmission Date: 20150821
  Serious: No
  Sender: FDA-Public Use
  Company Number: US-MALLINCKRODT-T201501507

PATIENT
  Age: 60 Year
  Sex: Male

DRUGS (2)
  1. H.P. ACTHAR [Suspect]
     Active Substance: CORTICOTROPIN
     Indication: CARDIAC SARCOIDOSIS
     Dosage: 80 U, 2X A WEEK
     Route: 058
     Dates: start: 20140701
  2. INSULIN [Suspect]
     Active Substance: INSULIN NOS
     Indication: TYPE 1 DIABETES MELLITUS
     Dosage: UNK
     Route: 065

REACTIONS (6)
  - Blood glucose increased [Unknown]
  - Muscle spasms [Not Recovered/Not Resolved]
  - Pneumonia [Recovered/Resolved]
  - Drug interaction [Unknown]
  - Abdominal distension [Unknown]
  - Cardiac failure congestive [Recovered/Resolved]

NARRATIVE: CASE EVENT DATE: 20150328
